FAERS Safety Report 10997204 (Version 1)
Quarter: 2015Q2

REPORT INFORMATION
  Report Type: Spontaneous
  Country: US (occurrence: US)
  Receive Date: 20150408
  Receipt Date: 20150408
  Transmission Date: 20150821
  Serious: No
  Sender: FDA-Public Use
  Company Number: US-BANPHARM-20142374

PATIENT
  Sex: Male

DRUGS (3)
  1. BAYER ASPIRIN 81 MG [Concomitant]
     Active Substance: ASPIRIN
  2. MULIT VITAIMIN [Concomitant]
  3. ALEVE [Suspect]
     Active Substance: NAPROXEN SODIUM
     Indication: MYALGIA
     Dosage: 2 DF, ONCE DAILY,
     Route: 048
     Dates: start: 20140224

REACTIONS (1)
  - Blood glucose increased [Unknown]

NARRATIVE: CASE EVENT DATE: 20140227
